FAERS Safety Report 9556503 (Version 1)
Quarter: 2013Q3

REPORT INFORMATION
  Report Type: Spontaneous
  Country: US (occurrence: US)
  Receive Date: 20130926
  Receipt Date: 20130926
  Transmission Date: 20140515
  Serious: No
  Sender: FDA-Public Use
  Company Number: US-PFIZER INC-2013274322

PATIENT
  Sex: Female

DRUGS (2)
  1. MEDROL [Suspect]
     Dosage: 2 MG, (HALFING THE 4 MG TABLET)
     Route: 048
  2. METHYLPREDNISOLONE [Suspect]
     Dosage: UNK

REACTIONS (4)
  - Product physical issue [Unknown]
  - Drug intolerance [Unknown]
  - Depressed mood [Unknown]
  - Dysgeusia [Unknown]
